FAERS Safety Report 5999968-1 (Version None)
Quarter: 2008Q4

REPORT INFORMATION
  Report Type: 
  Country: None (occurrence: None)
  Receive Date: 20081211
  Receipt Date: 20080910
  Transmission Date: 20090506
  Serious: No
  Sender: FDA-Public Use
  Company Number: US024590

PATIENT
  Sex: Male
  Weight: 92.5338 kg

DRUGS (6)
  1. TREANDA [Suspect]
     Indication: CHRONIC LYMPHOCYTIC LEUKAEMIA
     Dosage: 151 MG QD INTRAVENOUS
     Route: 042
     Dates: start: 20080908
  2. AVAPRO [Concomitant]
  3. SYNTHROID [Concomitant]
  4. LIPITOR [Concomitant]
  5. CYMBALTA [Concomitant]
  6. ASPIRIN [Concomitant]

REACTIONS (1)
  - BLOOD CREATININE INCREASED [None]
